FAERS Safety Report 4507982-8 (Version None)
Quarter: 2004Q4

REPORT INFORMATION
  Report Type: 
  Country: None (occurrence: None)
  Receive Date: 20041123
  Receipt Date: 20041115
  Transmission Date: 20050328
  Serious: Yes (Other)
  Sender: FDA-Public Use
  Company Number: US-JNJFOC-20041103862

PATIENT
  Sex: Male
  Weight: 92.99 kg

DRUGS (7)
  1. REMICADE [Suspect]
     Route: 042
  2. STEROIDS [Suspect]
     Indication: DRUG USE FOR UNKNOWN INDICATION
  3. PENTASA [Concomitant]
  4. XANAX [Concomitant]
  5. TRICOR [Concomitant]
  6. COLAZOL [Concomitant]
  7. VITAMIN B COMPLEX CAP [Concomitant]

REACTIONS (11)
  - ARTHRALGIA [None]
  - CHEST PAIN [None]
  - DRUG INEFFECTIVE [None]
  - FEELING ABNORMAL [None]
  - MUSCLE SPASMS [None]
  - PAIN [None]
  - PAIN IN EXTREMITY [None]
  - PALPITATIONS [None]
  - PARALYSIS [None]
  - TRISMUS [None]
  - WEIGHT INCREASED [None]
